FAERS Safety Report 5722020-7 (Version None)
Quarter: 2008Q2

REPORT INFORMATION
  Report Type: 
  Country: None (occurrence: None)
  Receive Date: 20080429
  Receipt Date: 20080418
  Transmission Date: 20081010
  Serious: Yes (Other)
  Sender: FDA-Public Use
  Company Number: JP-BRISTOL-MYERS SQUIBB COMPANY-14165294

PATIENT
  Age: 52 Year
  Sex: Female

DRUGS (10)
  1. ABILIFY [Suspect]
     Indication: SCHIZOPHRENIA
     Dosage: DOSE INCREASED TO 24MG QD PO FROM 18MAR08-ONGOING.
     Route: 048
     Dates: start: 20070521
  2. HALOPERIDOL [Concomitant]
  3. LEVOTOMIN [Concomitant]
  4. RISPERDAL [Concomitant]
  5. LODOPIN [Concomitant]
  6. NITRAZEPAM [Concomitant]
  7. BIPERIDEN HYDROCHLORIDE TAB [Concomitant]
  8. DEPAS [Concomitant]
  9. UBRETID [Concomitant]
  10. SEROQUEL [Concomitant]
     Dates: start: 20061101

REACTIONS (2)
  - EROTOMANIC DELUSION [None]
  - HALLUCINATION, AUDITORY [None]
